FAERS Safety Report 15532956 (Version 4)
Quarter: 2019Q1

REPORT INFORMATION
  Report Type: Spontaneous
  Country: PT (occurrence: PT)
  Receive Date: 20181019
  Receipt Date: 20190314
  Transmission Date: 20190417
  Serious: Yes (Hospitalization, Other)
  Sender: FDA-Public Use
  Company Number: PT-MYLANLABS-2018M1078084

PATIENT
  Age: 26 Year
  Sex: Male

DRUGS (20)
  1. MESTEROLONE [Suspect]
     Active Substance: MESTEROLONE
     Indication: PRODUCT USED FOR UNKNOWN INDICATION
     Dosage: 25 MG 4-6ID, 6 WEEKS CYCLE BEFORE THE COMPETITION
  2. BALIDON                            /00440801/ [Suspect]
     Active Substance: TRIAZOLAM
     Indication: PRODUCT USED FOR UNKNOWN INDICATION
     Dosage: 1200MG/WK, 6 WEEKS CYCLE BEFORE THE COMPETITION
  3. TESTOSTERONE. [Suspect]
     Active Substance: TESTOSTERONE
     Indication: PRODUCT USED FOR UNKNOWN INDICATION
     Dosage: 500 MG/WK 6 WEEKS CYCLE BEFORE THE COMPETITION
  4. LEVOTHYROXINE. [Suspect]
     Active Substance: LEVOTHYROXINE
     Indication: PRODUCT USED FOR UNKNOWN INDICATION
     Dosage: 100 ?G, UNK/ 100 MCG ID, 6 WEEKS CYCLE BEFORE THE COMPETITION
  5. FLUOXYMESTERONE [Suspect]
     Active Substance: FLUOXYMESTERONE
     Indication: PRODUCT USED FOR UNKNOWN INDICATION
     Dosage: 75 MG ID, 6 WEEKS CYCLE BEFORE THE COMPETITION
  6. TESTOSTERONE ENANTHATE. [Suspect]
     Active Substance: TESTOSTERONE ENANTHATE
     Indication: PRODUCT USED FOR UNKNOWN INDICATION
     Dosage: 250 MG ID, 6 WEEKS CYCLE BEFORE THE COMPETITION
  7. SPIRONOLACTONE ALTIZIDE ARROW [Concomitant]
     Active Substance: ALTHIAZIDE\SPIRONOLACTONE
     Indication: PRODUCT USED FOR UNKNOWN INDICATION
  8. LIOTHYRONINE [Suspect]
     Active Substance: LIOTHYRONINE
     Indication: PRODUCT USED FOR UNKNOWN INDICATION
     Dosage: 25 ?G, BID/ 25 MCG BID, 6 WEEKS CYCLE BEFORE THE COMPETITION
  9. DROSTANOLONE PROPIONATE [Suspect]
     Active Substance: DROMOSTANOLONE PROPIONATE
     Indication: PRODUCT USED FOR UNKNOWN INDICATION
     Dosage: 100 MG EVERY OTHER DAY, 6 WEEKS CYCLE BEFORE THE COMPETITION
  10. TRENBOLONE [Suspect]
     Active Substance: TRENBOLONE
     Indication: PRODUCT USED FOR UNKNOWN INDICATION
     Dosage: 100 MG EVERY OTHER DAY, 6 WEEKS CYCLE BEFORE THE COMPETITION
  11. STANOZOLOL [Suspect]
     Active Substance: STANOZOLOL
     Indication: PRODUCT USED FOR UNKNOWN INDICATION
     Dosage: 40 MG ID, 6 WEEKS CYCLE BEFORE THE COMPETITION
  12. SPIRONOLACTONE. [Suspect]
     Active Substance: SPIRONOLACTONE
     Indication: PRODUCT USED FOR UNKNOWN INDICATION
     Dosage: ON THE DAY OF COMPETITION
  13. CLENBUTEROL [Suspect]
     Active Substance: CLENBUTEROL
     Indication: PRODUCT USED FOR UNKNOWN INDICATION
     Dosage: TID, 6 WEEKS CYCLE BEFORE THE COMPETITION
  14. TESTOSTERONE CYPIONATE. [Suspect]
     Active Substance: TESTOSTERONE CYPIONATE
     Indication: PRODUCT USED FOR UNKNOWN INDICATION
     Dosage: 500 MG/WK 6 WEEKS CYCLE BEFORE THE COMPETITION
  15. MULTIVITAMINS                      /00116001/ [Suspect]
     Active Substance: VITAMINS
     Indication: PRODUCT USED FOR UNKNOWN INDICATION
     Dosage: 6 WEEKS CYCLE BEFORE THE COMPETITION
  16. ANASTROZOLE. [Suspect]
     Active Substance: ANASTROZOLE
     Indication: PRODUCT USED FOR UNKNOWN INDICATION
     Dosage: 1 MG  ID, 6 WEEKS CYCLE BEFORE THE COMPETITION
     Route: 048
  17. ALTIZIDE [Suspect]
     Active Substance: ALTHIAZIDE
     Indication: PRODUCT USED FOR UNKNOWN INDICATION
     Dosage: ON THE DAY OF COMPETITION
  18. CABERGOLINE. [Suspect]
     Active Substance: CABERGOLINE
     Indication: PRODUCT USED FOR UNKNOWN INDICATION
     Dosage: 0.25 MG EVERY OTHER DAY, 6 WEEKS CYCLE BEFORE THE COMPETITION
  19. TESTOSTERONE. [Suspect]
     Active Substance: TESTOSTERONE
     Dosage: 250 MG ID, 6 WEEKS CYCLE BEFORE THE COMPETITION
  20. SUSTANON [Suspect]
     Active Substance: TESTOSTERONE
     Indication: PRODUCT USED FOR UNKNOWN INDICATION
     Dosage: 250 MG TWICE WEEKLY, 6 WEEKS CYCLE BEFORE THE COMPETITION

REACTIONS (11)
  - Blood glucose increased [Unknown]
  - Product use in unapproved indication [Unknown]
  - Drug abuse [Unknown]
  - Glucose tolerance decreased [Unknown]
  - Haematocrit increased [Unknown]
  - Off label use [Unknown]
  - Product use issue [Unknown]
  - Performance enhancing product use [Unknown]
  - Diabetes mellitus [Unknown]
  - Secondary hypogonadism [Unknown]
  - Autoimmune thyroiditis [Unknown]
